FAERS Safety Report 8186346-2 (Version None)
Quarter: 2012Q1

REPORT INFORMATION
  Report Type: 
  Country: None (occurrence: None)
  Receive Date: 20120301
  Receipt Date: 20120214
  Transmission Date: 20120608
  Serious: No
  Sender: FDA-Public Use
  Company Number: FK201200355

PATIENT
  Age: 36 Year
  Sex: Female

DRUGS (1)
  1. PROPOFOL [Suspect]
     Indication: SEDATIVE THERAPY
     Dosage: 2.8 MG/KG/HR, INTRAVENOUS (NOT OTHERWISE SPECIFIED)
     Route: 042

REACTIONS (15)
  - HYPERPHOSPHATAEMIA [None]
  - ALANINE AMINOTRANSFERASE INCREASED [None]
  - HAEMODIALYSIS [None]
  - PULSELESS ELECTRICAL ACTIVITY [None]
  - PROPOFOL INFUSION SYNDROME [None]
  - SHOCK [None]
  - BRUGADA SYNDROME [None]
  - HYPERKALAEMIA [None]
  - ASPARTATE AMINOTRANSFERASE INCREASED [None]
  - BLOOD CREATINE PHOSPHOKINASE INCREASED [None]
  - BLOOD LACTIC ACID INCREASED [None]
  - VENTRICULAR TACHYCARDIA [None]
  - CARDIAC FUNCTION TEST ABNORMAL [None]
  - METABOLIC ACIDOSIS [None]
  - BRADYARRHYTHMIA [None]
